FAERS Safety Report 5053391-5 (Version None)
Quarter: 2006Q3

REPORT INFORMATION
  Report Type: 
  Country: None (occurrence: None)
  Receive Date: 20060718
  Receipt Date: 20060628
  Transmission Date: 20061208
  Serious: Yes (Hospitalization, Other)
  Sender: FDA-Public Use
  Company Number: PHFR2006GB02116

PATIENT
  Age: 35 Year
  Sex: Female

DRUGS (5)
  1. CLOZARIL [Suspect]
     Indication: SCHIZOPHRENIA
     Route: 048
     Dates: start: 20050906, end: 20060616
  2. AMISULPRIDE [Concomitant]
     Dosage: 400MG/DAY
     Route: 048
     Dates: start: 20051201
  3. PIRENZEPINE [Concomitant]
     Dosage: 25MG/DAY
     Route: 048
     Dates: start: 20060401
  4. VALPROATE SODIUM [Concomitant]
     Dosage: 1.5G/DAY
     Route: 048
  5. LAMOTRIGINE [Concomitant]
     Dosage: 100MG/DAY
     Route: 048

REACTIONS (4)
  - ABDOMINAL PAIN [None]
  - INTESTINAL FUNCTIONAL DISORDER [None]
  - IRRITABLE BOWEL SYNDROME [None]
  - REBOUND EFFECT [None]
